FAERS Safety Report 19837488 (Version 1)
Quarter: 2021Q3

REPORT INFORMATION
  Report Type: Report from Study
  Country: None (occurrence: US)
  Receive Date: 20210914
  Receipt Date: 20210914
  Transmission Date: 20211014
  Serious: Yes (Other)
  Sender: FDA-Public Use
  Company Number: US-ABBVIE-21K-163-3957176-00

PATIENT
  Sex: Male

DRUGS (2)
  1. RINVOQ [Suspect]
     Active Substance: UPADACITINIB
     Indication: CROHN^S DISEASE
     Route: 048
     Dates: start: 202105
  2. RINVOQ [Suspect]
     Active Substance: UPADACITINIB
     Indication: CROHN^S DISEASE

REACTIONS (4)
  - Ostomy bag placement [Unknown]
  - Acne [Unknown]
  - Product residue present [Unknown]
  - Off label use [Unknown]

NARRATIVE: CASE EVENT DATE: 2021
